FAERS Safety Report 9369324 (Version 1)
Quarter: 2013Q2

REPORT INFORMATION
  Report Type: Spontaneous
  Country: US (occurrence: None)
  Receive Date: 20130625
  Receipt Date: 20130625
  Transmission Date: 20140414
  Serious: Yes (Hospitalization)
  Sender: FDA-Public Use
  Company Number: None

PATIENT
  Age: 66 Year
  Sex: Male
  Weight: 80.5 kg

DRUGS (1)
  1. SULFAMETHOXAZOLE/TRIMETHOPRIM [Suspect]
     Dosage: MG
     Route: 048
     Dates: start: 20130509, end: 20130511

REACTIONS (5)
  - Nausea [None]
  - Hyperkalaemia [None]
  - Hyponatraemia [None]
  - Vomiting [None]
  - Blood creatinine increased [None]
